FAERS Safety Report 5480778-9 (Version None)
Quarter: 2007Q4

REPORT INFORMATION
  Report Type: 
  Country: None (occurrence: None)
  Receive Date: 20071009
  Receipt Date: 20070928
  Transmission Date: 20080405
  Serious: Yes (Hospitalization)
  Sender: FDA-Public Use
  Company Number: FR-SHR-FR-2006-005794

PATIENT
  Age: 47 Year
  Sex: Female

DRUGS (4)
  1. BETAFERON [Suspect]
     Indication: RELAPSING-REMITTING MULTIPLE SCLEROSIS
     Dosage: 16 MIU, EVERY 2D
     Route: 058
     Dates: start: 20040519
  2. CARTEOLOL HYDROCHLORIDE [Concomitant]
     Indication: GLAUCOMA
     Dosage: 2 GTT, 1X/DAY
     Route: 047
     Dates: start: 20050421
  3. ORAL CONTRACEPTIVE NOS [Concomitant]
     Indication: ORAL CONTRACEPTION
  4. PROGESTOGEL [Concomitant]

REACTIONS (1)
  - OVARIAN FIBROMA [None]
